FAERS Safety Report 5086711-6 (Version None)
Quarter: 2006Q3

REPORT INFORMATION
  Report Type: 
  Country: None (occurrence: None)
  Receive Date: 20060818
  Receipt Date: 20060804
  Transmission Date: 20061208
  Serious: Yes (Death)
  Sender: FDA-Public Use
  Company Number: 2006S1007367

PATIENT
  Age: 36 Year
  Sex: Male

DRUGS (4)
  1. CLOZAPINE [Suspect]
     Indication: PSYCHOTIC DISORDER
     Dosage: 37.5 MG HS PO
     Route: 048
     Dates: start: 20060501, end: 20060101
  2. CLONAZEPAM [Concomitant]
  3. LITHIUM [Concomitant]
  4. OLANZAPINE [Concomitant]

REACTIONS (1)
  - DEATH [None]
